FAERS Safety Report 25359844 (Version 1)
Quarter: 2025Q2

REPORT INFORMATION
  Report Type: Spontaneous
  Country: JP (occurrence: JP)
  Receive Date: 20250526
  Receipt Date: 20250526
  Transmission Date: 20250717
  Serious: Yes (Other)
  Sender: NOVARTIS
  Company Number: JP-002147023-NVSJ2025JP005531

PATIENT
  Sex: Female

DRUGS (1)
  1. FABHALTA [Suspect]
     Active Substance: IPTACOPAN HYDROCHLORIDE
     Indication: Paroxysmal nocturnal haemoglobinuria
     Dosage: 200 MG, BID
     Route: 048
     Dates: start: 202410

REACTIONS (4)
  - Breast cancer [Unknown]
  - Metastases to bone [Unknown]
  - Metastases to liver [Unknown]
  - Concomitant disease aggravated [Unknown]
